FAERS Safety Report 7953816-9 (Version None)
Quarter: 2011Q4

REPORT INFORMATION
  Report Type: 
  Country: None (occurrence: None)
  Receive Date: 20111202
  Receipt Date: 20111122
  Transmission Date: 20120403
  Serious: Yes (Hospitalization, Other)
  Sender: FDA-Public Use
  Company Number: GB-JNJFOC-20110902417

PATIENT
  Sex: Female

DRUGS (4)
  1. REMICADE [Suspect]
     Indication: HIDRADENITIS
     Dosage: FORTNIGHTLY
     Route: 042
     Dates: start: 20110902, end: 20110902
  2. LISINOPRIL [Concomitant]
     Route: 065
  3. BENDROFLUAZIDE [Concomitant]
     Route: 065
  4. TRAMADOL HCL [Concomitant]
     Dosage: AS NECESSARY
     Route: 065

REACTIONS (9)
  - CHEST DISCOMFORT [None]
  - INFUSION RELATED REACTION [None]
  - MALAISE [None]
  - CHEST PAIN [None]
  - TACHYCARDIA [None]
  - FEELING HOT [None]
  - PHARYNGEAL OEDEMA [None]
  - ABDOMINAL PAIN UPPER [None]
  - WHEEZING [None]
